FAERS Safety Report 9492274 (Version 2)
Quarter: 2013Q3

REPORT INFORMATION
  Report Type: Spontaneous
  Country: LU (occurrence: LU)
  Receive Date: 20130830
  Receipt Date: 20130924
  Transmission Date: 20140515
  Serious: Yes (Disabling)
  Sender: FDA-Public Use
  Company Number: LU-PFIZER INC-2013246350

PATIENT
  Age: 62 Year
  Sex: Female
  Weight: 80 kg

DRUGS (12)
  1. LIPITOR [Suspect]
     Indication: HYPERCHOLESTEROLAEMIA
     Dosage: 20 MG, 1X/DAY
     Route: 048
     Dates: start: 20130720
  2. AMLOR [Interacting]
     Indication: HYPERTENSION
     Dosage: 5 MG, 1X/DAY, DURING PERIODS OF WARM WEATHER
     Route: 048
     Dates: start: 2002, end: 20130730
  3. CONCOR [Concomitant]
     Dosage: 5 MG, UNK
     Route: 048
     Dates: start: 2002
  4. COAPROVEL [Concomitant]
     Dosage: 12.5 MG/150 MG
     Route: 048
     Dates: start: 2002
  5. INEGY [Concomitant]
     Dosage: 10 MG/20 MG
  6. EUTHYROX [Concomitant]
     Dosage: 150
     Route: 048
     Dates: start: 2000
  7. CITALOPRAM [Concomitant]
     Dosage: 10MG DAILY
     Route: 048
     Dates: start: 2001
  8. CRANBEROLA CYS-CONTROL [Concomitant]
     Dosage: UNK
     Route: 048
     Dates: start: 2012
  9. D-CURE [Concomitant]
     Dosage: UNK
     Route: 048
     Dates: start: 2009
  10. IBUPROFEN [Concomitant]
     Dosage: 400 MG, AS NEEDED
     Route: 048
  11. DOXYCYCLINE [Concomitant]
     Dosage: 200 MG, UNK
     Route: 048
     Dates: start: 20130110
  12. DOXYCYCLINE [Concomitant]
     Dosage: 200 MG, UNK
     Route: 048
     Dates: start: 20130522

REACTIONS (4)
  - Drug interaction [Recovered/Resolved]
  - Abasia [Recovered/Resolved]
  - Pain in extremity [Recovered/Resolved]
  - Burning sensation [Recovered/Resolved]
